FAERS Safety Report 14300129 (Version 1)
Quarter: 2017Q4

REPORT INFORMATION
  Report Type: Spontaneous
  Country: DE (occurrence: DE)
  Receive Date: 20171219
  Receipt Date: 20171219
  Transmission Date: 20180321
  Serious: Yes (Other)
  Sender: FDA-Public Use
  Company Number: DE-SUN PHARMACEUTICAL INDUSTRIES LTD-2017RR-157180

PATIENT
  Sex: Female
  Weight: 100 kg

DRUGS (8)
  1. CARBAMAZEPIN [Interacting]
     Active Substance: CARBAMAZEPINE
     Indication: PRODUCT USED FOR UNKNOWN INDICATION
     Dosage: 1800 MG
     Route: 065
     Dates: end: 201702
  2. ZEBINIX [Interacting]
     Active Substance: ESLICARBAZEPINE ACETATE
     Indication: EPILEPSY
     Dosage: 1200 MG, QD, DAILY DOSE: 1200 MG MILLIGRAM(S) EVERY 24 HOUR
     Route: 048
     Dates: start: 201702, end: 201707
  3. LEVETIRACETAM. [Suspect]
     Active Substance: LEVETIRACETAM
     Indication: PRODUCT USED FOR UNKNOWN INDICATION
     Dosage: 1000 MG, BID, DAILY DOSE: 1000 MG MILLIGRAM(S) EVERY 12 HOUR
     Route: 048
  4. FRISIUM [Concomitant]
     Active Substance: CLOBAZAM
     Indication: INSOMNIA
     Dosage: ()
     Route: 065
  5. ZEBINIX [Interacting]
     Active Substance: ESLICARBAZEPINE ACETATE
     Dosage: 400 MG, UNKNOWN
     Route: 048
     Dates: start: 2017
  6. OSPOLOT [Concomitant]
     Active Substance: SULTHIAME
     Indication: PRODUCT USED FOR UNKNOWN INDICATION
     Dosage: 50 MG, BID, DAILY DOSE: 50 MG MILLIGRAM(S) EVERY 12 HOUR
     Route: 048
  7. FRISIUM [Concomitant]
     Active Substance: CLOBAZAM
     Indication: RESTLESSNESS
     Dosage: 10 MG, QD, DAILY DOSE: 10 MG MILLIGRAM(S) EVERY 24 HOUR
     Route: 048
     Dates: start: 201705, end: 201707
  8. LAMOTRIGIN [Concomitant]
     Active Substance: LAMOTRIGINE
     Indication: PRODUCT USED FOR UNKNOWN INDICATION
     Dosage: UNK
     Route: 065

REACTIONS (5)
  - Agitation [Not Recovered/Not Resolved]
  - Sleep disorder [Recovering/Resolving]
  - Drug dose titration not performed [Unknown]
  - Drug interaction [Unknown]
  - Restlessness [Recovering/Resolving]

NARRATIVE: CASE EVENT DATE: 201702
